FAERS Safety Report 4720286-3 (Version None)
Quarter: 2005Q3

REPORT INFORMATION
  Report Type: 
  Country: None (occurrence: None)
  Receive Date: 20050721
  Receipt Date: 20050715
  Transmission Date: 20060218
  Serious: Yes (Hospitalization)
  Sender: FDA-Public Use
  Company Number: FR-MERCK-0507FRA00052

PATIENT
  Age: 76 Year
  Sex: Female

DRUGS (1)
  1. COZAAR [Suspect]
     Indication: HYPERTENSION
     Route: 048
     Dates: start: 20040601, end: 20050620

REACTIONS (3)
  - BRONCHITIS CHRONIC [None]
  - COUGH [None]
  - DYSPNOEA [None]
